FAERS Safety Report 10080536 (Version 1)
Quarter: 2014Q2

REPORT INFORMATION
  Report Type: Spontaneous
  Country: US (occurrence: US)
  Receive Date: 20140416
  Receipt Date: 20140416
  Transmission Date: 20141212
  Serious: No
  Sender: FDA-Public Use
  Company Number: US-009507513-1404USA006330

PATIENT
  Sex: Male

DRUGS (3)
  1. JANUVIA [Suspect]
     Dosage: 100 MG, QD
     Route: 048
  2. METFORMIN [Concomitant]
     Dosage: 1000MG, BID
  3. GLIPIZIDE [Concomitant]
     Dosage: 10 MG, BID

REACTIONS (2)
  - Glycosylated haemoglobin increased [Unknown]
  - Blood triglycerides increased [Unknown]
